FAERS Safety Report 9753998 (Version 1)
Quarter: 2013Q4

REPORT INFORMATION
  Report Type: Spontaneous
  Country: BR (occurrence: BR)
  Receive Date: 20131213
  Receipt Date: 20131213
  Transmission Date: 20140711
  Serious: Yes (Other)
  Sender: FDA-Public Use
  Company Number: BR-009507513-1312BRA005609

PATIENT
  Age: 64 Year
  Sex: Male
  Weight: 85 kg

DRUGS (9)
  1. JANUMET [Suspect]
     Indication: DIABETES MELLITUS
     Dosage: 50-1000 MG, QAM
     Route: 048
     Dates: start: 20130408
  2. JANUMET [Suspect]
     Dosage: 50-1000 MG, QPM
     Route: 048
     Dates: start: 20130408
  3. ENALAPRIL MALEATE (NON MERCK) [Concomitant]
     Indication: HYPERTENSION
     Dosage: 20 MG, QAM
     Route: 048
  4. ENALAPRIL MALEATE (NON MERCK) [Concomitant]
     Dosage: 20 MG, QPM
     Route: 048
  5. SIMVASTATIN (NON MERCK) [Concomitant]
     Indication: CHEST PAIN
     Dosage: 20 MG, QPM
     Route: 048
     Dates: start: 2003
  6. DULOXETINE HYDROCHLORIDE (VELIJA) [Concomitant]
     Indication: ANXIETY
     Dosage: 60 MG, QD
     Dates: start: 2012, end: 201312
  7. DULOXETINE HYDROCHLORIDE (VELIJA) [Concomitant]
     Indication: WEIGHT DECREASED
  8. AAS [Concomitant]
     Dosage: 1 DF, QD
     Dates: start: 2011, end: 20131203
  9. ZOLPIDEM TARTRATE [Concomitant]
     Indication: INSOMNIA
     Dosage: 0.5 DF, QPM
     Dates: start: 201305

REACTIONS (8)
  - Blindness transient [Not Recovered/Not Resolved]
  - Serum ferritin decreased [Not Recovered/Not Resolved]
  - Gastric haemorrhage [Unknown]
  - Gastritis [Unknown]
  - Myalgia [Not Recovered/Not Resolved]
  - Dizziness [Not Recovered/Not Resolved]
  - Blood glucose increased [Not Recovered/Not Resolved]
  - Transferrin saturation decreased [Not Recovered/Not Resolved]
